FAERS Safety Report 8832221 (Version 1)
Quarter: 2012Q4

REPORT INFORMATION
  Report Type: 
  Country: JP (occurrence: JP)
  Receive Date: 20121009
  Receipt Date: 20121009
  Transmission Date: 20130627
  Serious: No
  Sender: FDA-Public Use
  Company Number: JP-UCBSA-068250

PATIENT
  Age: 68 Year
  Sex: Male

DRUGS (2)
  1. E KEPPRA [Suspect]
     Route: 048
  2. DEPAKENE [Concomitant]

REACTIONS (1)
  - Haemoglobin decreased [Unknown]
